FAERS Safety Report 6244723-0 (Version None)
Quarter: 2009Q2

REPORT INFORMATION
  Report Type: 
  Country: None (occurrence: None)
  Receive Date: 20090623
  Receipt Date: 20090623
  Transmission Date: 20091009
  Serious: Yes (Hospitalization)
  Sender: FDA-Public Use
  Company Number: None

PATIENT
  Age: 84 Year
  Sex: Male
  Weight: 54.54 kg

DRUGS (5)
  1. AGGRENOX [Suspect]
     Dosage: 1/2 CAPSULE BID PO CHRONIC
     Route: 048
  2. AVODART [Concomitant]
  3. CARBIDOPA AND LEVODOPA [Concomitant]
  4. ROPINOROLE [Concomitant]
  5. VITRON C [Concomitant]

REACTIONS (3)
  - DIVERTICULUM INTESTINAL HAEMORRHAGIC [None]
  - HAEMORRHAGIC ANAEMIA [None]
  - ORTHOSTATIC HYPOTENSION [None]
